FAERS Safety Report 7806919-3 (Version None)
Quarter: 2011Q4

REPORT INFORMATION
  Report Type: 
  Country: None (occurrence: None)
  Receive Date: 20111011
  Receipt Date: 20110926
  Transmission Date: 20120403
  Serious: Yes (Hospitalization)
  Sender: FDA-Public Use
  Company Number: JP-ROCHE-799053

PATIENT
  Age: 62 Year
  Sex: Female
  Weight: 84 kg

DRUGS (12)
  1. CYCLOPHOSPHAMIDE [Concomitant]
     Dosage: DOSE:500 MG/M2
     Dates: start: 20110310, end: 20110519
  2. NOVORAPID [Suspect]
     Indication: PRODUCT USED FOR UNKNOWN INDICATION
     Dosage: DOSAGE IS UNCERTAIN
     Route: 058
  3. HERCEPTIN [Suspect]
     Route: 041
     Dates: start: 20110705, end: 20110705
  4. HERCEPTIN [Suspect]
     Indication: BREAST CANCER
     Dosage: NOTE: DOSAGE IS UNCERTAIN
     Route: 041
     Dates: start: 20101025, end: 20101025
  5. HERCEPTIN [Suspect]
     Dosage: DOSAGE:UNCERTAIN,FREQUENCY:UNSPECIFIED
     Route: 041
     Dates: start: 20110706, end: 20110706
  6. METFORMIN HCL [Suspect]
     Indication: PRODUCT USED FOR UNKNOWN INDICATION
     Route: 048
  7. EPIRUBICIN HYDROCHLORIDE [Concomitant]
     Dosage: DOSE:100MG/M2
     Dates: start: 20110310, end: 20110519
  8. ASPIRIN [Suspect]
     Indication: PRODUCT USED FOR UNKNOWN INDICATION
     Dosage: DOSAGE IS UNCERTAIN
     Route: 048
  9. FLUOROURACIL [Concomitant]
     Dosage: DOSE:500 MG/M2
     Dates: start: 20110310, end: 20110519
  10. HERCEPTIN [Suspect]
     Dosage: FREQUENCY:1
     Route: 041
     Dates: start: 20101101, end: 20110217
  11. CRESTOR [Suspect]
     Indication: PRODUCT USED FOR UNKNOWN INDICATION
     Dosage: DOSAGE IS UNCERTAIN
     Route: 048
  12. PACLITAXEL [Concomitant]
     Dosage: DOSE:80 MG/M2
     Route: 042
     Dates: start: 20101101, end: 20110217

REACTIONS (2)
  - CEREBELLAR INFARCTION [None]
  - INFUSION RELATED REACTION [None]
